FAERS Safety Report 25255633 (Version 2)
Quarter: 2025Q3

REPORT INFORMATION
  Report Type: Spontaneous
  Country: US (occurrence: None)
  Receive Date: 20250430
  Receipt Date: 20250729
  Transmission Date: 20251021
  Serious: No
  Sender: INCYTE
  Company Number: US-INCYTE CORPORATION-2025IN004306

PATIENT
  Age: 44 Year

DRUGS (2)
  1. JAKAFI [Suspect]
     Active Substance: RUXOLITINIB
     Indication: Polycythaemia vera
     Route: 065
  2. BESREMI [Concomitant]
     Active Substance: ROPEGINTERFERON ALFA-2B-NJFT
     Indication: Product used for unknown indication
     Route: 065

REACTIONS (7)
  - Iron deficiency [Recovering/Resolving]
  - Mean cell volume increased [Unknown]
  - Haematocrit increased [Unknown]
  - Eructation [Unknown]
  - Anxiety [Unknown]
  - Disturbance in attention [Unknown]
  - Red blood cell count decreased [Unknown]
